FAERS Safety Report 10697098 (Version 2)
Quarter: 2015Q1

REPORT INFORMATION
  Report Type: Spontaneous
  Country: FR (occurrence: FR)
  Receive Date: 20150108
  Receipt Date: 20150203
  Transmission Date: 20150721
  Serious: Yes (Other)
  Sender: FDA-Public Use
  Company Number: FR-TEVA-532292ISR

PATIENT
  Age: 2 Year
  Sex: Male

DRUGS (1)
  1. LORATADINE. [Suspect]
     Active Substance: LORATADINE
     Route: 065

REACTIONS (2)
  - Chronic kidney disease [Unknown]
  - Haemolytic anaemia [Recovering/Resolving]
